FAERS Safety Report 6247392-9 (Version None)
Quarter: 2009Q2

REPORT INFORMATION
  Report Type: 
  Country: None (occurrence: None)
  Receive Date: 20090626
  Receipt Date: 20090616
  Transmission Date: 20091009
  Serious: Yes (Death)
  Sender: FDA-Public Use
  Company Number: B0580655A

PATIENT
  Age: 38 Week

DRUGS (3)
  1. COMBIVIR [Suspect]
     Dates: start: 20081028
  2. KALETRA [Suspect]
     Dates: start: 20081028
  3. LOMOTIL [Concomitant]
     Dates: start: 20081101

REACTIONS (2)
  - STILLBIRTH [None]
  - UMBILICAL CORD VASCULAR DISORDER [None]
